FAERS Safety Report 16183956 (Version 1)
Quarter: 2019Q2

REPORT INFORMATION
  Report Type: Spontaneous
  Country: ES (occurrence: ES)
  Receive Date: 20190411
  Receipt Date: 20190411
  Transmission Date: 20190711
  Serious: Yes (Hospitalization)
  Sender: FDA-Public Use
  Company Number: ES-TEVA-2019-ES-1034017

PATIENT
  Age: 90 Year
  Sex: Female

DRUGS (10)
  1. ALOPURINOL CINFA 300 MG COMPRIMIDOS EFG, 30 COMPRIMIDOS [Concomitant]
     Active Substance: ALLOPURINOL
     Dosage: 300 MILLIGRAM DAILY;
     Route: 048
  2. ATENOLOL CINFA 50 MG COMPRIMIDOS EFG , 30 COMPRIMIDOS [Concomitant]
     Active Substance: ATENOLOL
     Route: 048
     Dates: start: 20180111
  3. FUROSEMIDA CINFA 40 MG COMPRIMIDOS EFG, 10 COMPRIMIDOS [Concomitant]
     Dosage: 40 MILLIGRAM DAILY;
     Route: 048
     Dates: start: 20180202
  4. ADIRO 100 MG COMPRIMIDOS GASTRORRESISTENTES EFG, 30 COMPRIMIDOS (POLIP [Concomitant]
     Active Substance: ASPIRIN
     Dosage: 100 MILLIGRAM DAILY;
     Route: 048
  5. EUTIROX 50 MICROGRAMOS COMPRIMIDOS , 100 COMPRIMIDOS [Concomitant]
     Active Substance: LEVOTHYROXINE SODIUM
     Dosage: 50 MICROGRAM DAILY;
     Route: 048
  6. MIRTAZAPINA NORMON 15 MG COMPRIMIDOS RECUBIERTOS CON PELICULA EFG, 30 [Concomitant]
     Active Substance: MIRTAZAPINE
     Dosage: 7.5 MILLIGRAM DAILY;
     Route: 048
  7. VALSARTAN (7423A) [Suspect]
     Active Substance: VALSARTAN
     Indication: HYPERTENSION
     Dosage: 160 MILLIGRAM DAILY;
     Route: 048
     Dates: start: 2018, end: 20181124
  8. ATORVASTATINA CINFA 40 MG COMPRIMIDOS RECUBIERTOS CON PELICULA EFG, 28 [Concomitant]
     Active Substance: ATORVASTATIN
     Dosage: 40 MILLIGRAM DAILY;
     Route: 048
  9. ESPIRONOLACTONA ALTER 25 MG COMPRIMIDOS RECUBIERTOS EFG, 20 COMPRIMIDO [Suspect]
     Active Substance: SPIRONOLACTONE
     Indication: HYPERTENSION
     Route: 048
     Dates: start: 20180904, end: 20181120
  10. RANITIDINA CINFA 150 MG COMPRIMIDOS RECUBIERTOS CON PELICULA EFG, 28 C [Concomitant]
     Active Substance: RANITIDINE
     Dosage: 150 MILLIGRAM DAILY;
     Route: 048

REACTIONS (3)
  - Acute kidney injury [Recovered/Resolved]
  - Drug interaction [Unknown]
  - Hyperkalaemia [Recovered/Resolved]

NARRATIVE: CASE EVENT DATE: 20181120
